FAERS Safety Report 19565125 (Version 2)
Quarter: 2021Q3

REPORT INFORMATION
  Report Type: Spontaneous
  Country: US (occurrence: US)
  Receive Date: 20210716
  Receipt Date: 20210826
  Transmission Date: 20211014
  Serious: Yes (Death, Life-Threatening, Hospitalization, Other)
  Sender: FDA-Public Use
  Company Number: US-STRIDES ARCOLAB LIMITED-2021SP024957

PATIENT
  Age: 68 Year
  Sex: Male

DRUGS (14)
  1. CYCLOSPORINE. [Suspect]
     Active Substance: CYCLOSPORINE
     Indication: IMMUNOSUPPRESSANT DRUG THERAPY
     Dosage: UNK
     Route: 065
     Dates: start: 2020
  2. INSULIN [Concomitant]
     Active Substance: INSULIN NOS
     Indication: HYPERGLYCAEMIA
     Dosage: UNK
     Route: 042
     Dates: start: 2020
  3. PREDNISOLONE. [Suspect]
     Active Substance: PREDNISOLONE
     Indication: HEART TRANSPLANT
     Dosage: 10 MILLIGRAM PER 24 HOURS
     Route: 048
     Dates: start: 202002
  4. VALGANCICLOVIR. [Concomitant]
     Active Substance: VALGANCICLOVIR
     Indication: PROPHYLAXIS
     Dosage: UNK
     Route: 065
     Dates: start: 202003
  5. MYCOPHENOLATE MOFETIL. [Suspect]
     Active Substance: MYCOPHENOLATE MOFETIL
     Indication: HEART TRANSPLANT
  6. METHYLPREDNISOLONE. [Suspect]
     Active Substance: METHYLPREDNISOLONE
     Indication: GOUT
     Dosage: UNK
     Route: 042
     Dates: start: 2020, end: 2020
  7. MYCOPHENOLATE MOFETIL. [Suspect]
     Active Substance: MYCOPHENOLATE MOFETIL
     Indication: IMMUNOSUPPRESSANT DRUG THERAPY
     Dosage: 250 MILLIGRAM PER 12 HOUR
     Route: 048
     Dates: start: 202002
  8. TACROLIMUS. [Suspect]
     Active Substance: TACROLIMUS
     Indication: HEART TRANSPLANT
     Dosage: 5 MILLIGRAM, QD IN EVENING
     Route: 048
     Dates: start: 202002
  9. TACROLIMUS. [Suspect]
     Active Substance: TACROLIMUS
     Indication: IMMUNOSUPPRESSANT DRUG THERAPY
     Dosage: 4 MILLIGRAM, QD IN MORNING
     Route: 048
     Dates: start: 202003
  10. CYCLOSPORINE. [Suspect]
     Active Substance: CYCLOSPORINE
     Indication: HEART TRANSPLANT
  11. ATOVAQUONE. [Concomitant]
     Active Substance: ATOVAQUONE
     Indication: PROPHYLAXIS
     Dosage: UNK
     Route: 065
     Dates: start: 202003
  12. AMIODARONE [Concomitant]
     Active Substance: AMIODARONE
     Indication: PRODUCT USED FOR UNKNOWN INDICATION
     Dosage: UNK
     Route: 065
  13. PREDNISOLONE. [Suspect]
     Active Substance: PREDNISOLONE
     Indication: IMMUNOSUPPRESSANT DRUG THERAPY
     Dosage: 7.5 MILLIGRAM PER 24 HOURS (TAPER)
     Route: 048
     Dates: start: 2020
  14. NYSTATIN. [Concomitant]
     Active Substance: NYSTATIN
     Indication: PROPHYLAXIS
     Dosage: UNK
     Route: 042
     Dates: start: 202003

REACTIONS (20)
  - Vascular pseudoaneurysm [Fatal]
  - Wound infection bacterial [Fatal]
  - Enterococcal infection [Fatal]
  - COVID-19 [Unknown]
  - Wound infection [Unknown]
  - Enterobacter infection [Fatal]
  - Mucormycosis [Fatal]
  - Decubitus ulcer [Unknown]
  - Acute kidney injury [Fatal]
  - Respiratory failure [Fatal]
  - Cutaneous mucormycosis [Fatal]
  - Morganella infection [Fatal]
  - Chest wall abscess [Fatal]
  - Staphylococcal infection [Fatal]
  - Bacterial infection [Fatal]
  - Condition aggravated [Fatal]
  - Encephalopathy [Fatal]
  - Septic shock [Fatal]
  - Klebsiella infection [Fatal]
  - Graft infection [Unknown]

NARRATIVE: CASE EVENT DATE: 2020
